FAERS Safety Report 13087168 (Version 1)
Quarter: 2017Q1

REPORT INFORMATION
  Report Type: Report from Study
  Country: None (occurrence: US)
  Receive Date: 20170105
  Receipt Date: 20170105
  Transmission Date: 20170428
  Serious: Yes (Death, Other)
  Sender: FDA-Public Use
  Company Number: US-ABBVIE-16K-163-1785166-00

PATIENT
  Age: 14 Year
  Sex: Female

DRUGS (1)
  1. HUMIRA [Suspect]
     Active Substance: ADALIMUMAB
     Indication: CROHN^S DISEASE
     Route: 058
     Dates: start: 20160921, end: 20161108

REACTIONS (2)
  - Drug ineffective [Not Recovered/Not Resolved]
  - Seizure [Fatal]

NARRATIVE: CASE EVENT DATE: 20160921
